FAERS Safety Report 8215312-3 (Version None)
Quarter: 2012Q1

REPORT INFORMATION
  Report Type: 
  Country: None (occurrence: None)
  Receive Date: 20120316
  Receipt Date: 20120306
  Transmission Date: 20120608
  Serious: Yes (Other)
  Sender: FDA-Public Use
  Company Number: US-ELI_LILLY_AND_COMPANY-US201203002170

PATIENT
  Sex: Female

DRUGS (2)
  1. FORTEO [Suspect]
     Indication: OSTEOPOROSIS
     Dosage: 20 UG, QD
     Route: 065
     Dates: start: 20091101
  2. ANALGESICS [Concomitant]
     Indication: PAIN

REACTIONS (5)
  - BLINDNESS UNILATERAL [None]
  - PAIN [None]
  - MALAISE [None]
  - ADVERSE DRUG REACTION [None]
  - GAIT DISTURBANCE [None]
